FAERS Safety Report 9448302 (Version 1)
Quarter: 2013Q3

REPORT INFORMATION
  Report Type: Spontaneous
  Country: FR (occurrence: FR)
  Receive Date: 20130808
  Receipt Date: 20130808
  Transmission Date: 20140515
  Serious: Yes (Other)
  Sender: FDA-Public Use
  Company Number: FR-JNJFOC-20130801519

PATIENT
  Age: 20 Year
  Sex: Female

DRUGS (7)
  1. REMICADE [Suspect]
     Indication: SPONDYLITIS
     Route: 042
  2. REMICADE [Suspect]
     Indication: SPONDYLITIS
     Route: 042
     Dates: start: 20130625, end: 20130625
  3. AERIUS [Concomitant]
     Indication: PREMEDICATION
     Route: 065
  4. APRANAX [Concomitant]
     Route: 065
  5. EUPANTOL [Concomitant]
     Route: 065
  6. DAFALGAN [Concomitant]
     Route: 065
  7. MONOCRIXO [Concomitant]
     Route: 065

REACTIONS (1)
  - Migraine [Recovered/Resolved]
